FAERS Safety Report 12436885 (Version 2)
Quarter: 2016Q3

REPORT INFORMATION
  Report Type: Report from Study
  Country: FR (occurrence: FR)
  Receive Date: 20160606
  Receipt Date: 20160707
  Transmission Date: 20161109
  Serious: Yes (Hospitalization)
  Sender: FDA-Public Use
  Company Number: FR-ROCHE-1768094

PATIENT
  Age: 81 Year
  Sex: Male

DRUGS (3)
  1. GEMCITABINE [Suspect]
     Active Substance: GEMCITABINE\GEMCITABINE HYDROCHLORIDE
     Indication: METASTATIC RENAL CELL CARCINOMA
     Dosage: MOST RECENT DOSE OF GEMCITABINE 2320MG WAS ON 18/MAY/2016. CUMMULATIVE DOSE SINCE 1ST ADMINISTRATION
     Route: 042
     Dates: start: 20160510
  2. CARBOPLATIN. [Suspect]
     Active Substance: CARBOPLATIN
     Indication: METASTATIC RENAL CELL CARCINOMA
     Dosage: MOST RECENT DOSE OF CARBOPLATIN 300MG WAS ON 10/MAY/2016
     Route: 042
     Dates: start: 20160510
  3. BEVACIZUMAB [Suspect]
     Active Substance: BEVACIZUMAB
     Indication: METASTATIC RENAL CELL CARCINOMA
     Dosage: MOST RECENT DOSE OF BEVACIZUMAB 1150MG WAS ON 10/MAY/2016
     Route: 042
     Dates: start: 20160510

REACTIONS (1)
  - Aplasia [Recovered/Resolved]

NARRATIVE: CASE EVENT DATE: 20160528
